FAERS Safety Report 11769791 (Version 1)
Quarter: 2015Q4

REPORT INFORMATION
  Report Type: Spontaneous
  Country: US (occurrence: US)
  Receive Date: 20151123
  Receipt Date: 20151123
  Transmission Date: 20160304
  Serious: Yes (Death, Life-Threatening, Other)
  Sender: FDA-Public Use
  Company Number: US-ROXANE LABORATORIES, INC.-2015-RO-01988RO

PATIENT
  Age: 63 Year
  Sex: Male

DRUGS (1)
  1. DEXAMETHASONE. [Suspect]
     Active Substance: DEXAMETHASONE
     Indication: THYROIDITIS
     Route: 065

REACTIONS (9)
  - Cardio-respiratory arrest [Fatal]
  - Cardiomegaly [None]
  - Septic shock [Unknown]
  - Acute coronary syndrome [None]
  - Acute kidney injury [Unknown]
  - Metabolic acidosis [None]
  - Cardiac failure [None]
  - Pneumocystis jirovecii pneumonia [Fatal]
  - Respiratory acidosis [None]
